FAERS Safety Report 13755359 (Version 2)
Quarter: 2017Q3

REPORT INFORMATION
  Report Type: Spontaneous
  Country: IT (occurrence: IT)
  Receive Date: 20170714
  Receipt Date: 20170728
  Transmission Date: 20171127
  Serious: Yes (Life-Threatening, Hospitalization)
  Sender: FDA-Public Use
  Company Number: IT-ELI_LILLY_AND_COMPANY-IT201707003005

PATIENT
  Age: 41 Year
  Sex: Male
  Weight: 65 kg

DRUGS (1)
  1. ZYPADHERA [Suspect]
     Active Substance: OLANZAPINE PAMOATE
     Indication: SCHIZOPHRENIA
     Dosage: 405 MG, MONTHLY (1/M)
     Route: 030
     Dates: start: 201110

REACTIONS (14)
  - Hyperhidrosis [Recovered/Resolved]
  - Erythema [Recovered/Resolved]
  - Dyspnoea [Recovered/Resolved]
  - Blood pressure systolic increased [Recovered/Resolved]
  - Somnolence [Recovered/Resolved]
  - Dyskinesia [Recovered/Resolved]
  - Tachycardia [Recovered/Resolved]
  - Fear [Recovered/Resolved]
  - Breath sounds abnormal [Recovered/Resolved]
  - Aggression [Recovered/Resolved]
  - Psychomotor hyperactivity [Recovered/Resolved]
  - Hallucination [Recovered/Resolved]
  - Post-injection delirium sedation syndrome [Recovered/Resolved]
  - Confusional state [Recovered/Resolved]

NARRATIVE: CASE EVENT DATE: 20170707
